FAERS Safety Report 8830735 (Version 1)
Quarter: 2012Q4

REPORT INFORMATION
  Report Type: Report from Study
  Country: CA (occurrence: CA)
  Receive Date: 20121009
  Receipt Date: 20121009
  Transmission Date: 20130627
  Serious: Yes (Hospitalization, Other)
  Sender: FDA-Public Use
  Company Number: CA-JNJFOC-20120801733

PATIENT
  Age: 44 Year
  Sex: Male
  Weight: 86.1 kg

DRUGS (7)
  1. REMICADE [Suspect]
     Indication: COLITIS ULCERATIVE
     Route: 042
     Dates: start: 201203
  2. REMICADE [Suspect]
     Indication: COLITIS ULCERATIVE
     Route: 042
     Dates: start: 20120215
  3. REMICADE [Suspect]
     Indication: ANKYLOSING SPONDYLITIS
     Route: 042
     Dates: start: 201203
  4. REMICADE [Suspect]
     Indication: ANKYLOSING SPONDYLITIS
     Route: 042
     Dates: start: 20120215
  5. METHOTREXATE [Concomitant]
     Route: 058
  6. ADVAIR [Concomitant]
     Route: 065
  7. MEZAVANT [Concomitant]
     Route: 065

REACTIONS (1)
  - Osteonecrosis [Recovering/Resolving]
